FAERS Safety Report 11992417 (Version 1)
Quarter: 2016Q1

REPORT INFORMATION
  Report Type: Spontaneous
  Country: US (occurrence: US)
  Receive Date: 20160203
  Receipt Date: 20160203
  Transmission Date: 20160526
  Serious: No
  Sender: FDA-Public Use
  Company Number: US-ASTRAZENECA-2016SE07713

PATIENT
  Age: 28773 Day
  Sex: Female
  Weight: 52.2 kg

DRUGS (9)
  1. OMEPRAZOLE. [Suspect]
     Active Substance: OMEPRAZOLE
     Indication: ANTACID THERAPY
     Dosage: EVERY DAY
     Route: 048
     Dates: start: 201504
  2. ASPRIN [Concomitant]
     Active Substance: ASPIRIN
     Indication: DRUG THERAPY
  3. LIBRAX [Concomitant]
     Active Substance: CHLORDIAZEPOXIDE HYDROCHLORIDE\CLIDINIUM BROMIDE
     Indication: IRRITABLE BOWEL SYNDROME
     Dates: start: 201509
  4. BRILINTA [Suspect]
     Active Substance: TICAGRELOR
     Indication: STENT PLACEMENT
     Route: 048
  5. AMIODARONE [Concomitant]
     Active Substance: AMIODARONE
     Indication: ATRIAL FIBRILLATION
  6. PAXIL [Concomitant]
     Active Substance: PAROXETINE HYDROCHLORIDE
     Indication: ANXIETY
  7. AMIODARONE [Concomitant]
     Active Substance: AMIODARONE
     Indication: BLOOD PRESSURE MEASUREMENT
  8. COUMADIN [Concomitant]
     Active Substance: WARFARIN SODIUM
     Indication: ATRIAL FIBRILLATION
     Dates: start: 201511
  9. LOVANOX [Concomitant]
     Dates: start: 201509

REACTIONS (2)
  - Blood disorder [Unknown]
  - Haemorrhage [Unknown]

NARRATIVE: CASE EVENT DATE: 20151231
